FAERS Safety Report 6341191-5 (Version None)
Quarter: 2009Q3

REPORT INFORMATION
  Report Type: 
  Country: None (occurrence: None)
  Receive Date: 20090902
  Receipt Date: 20090902
  Transmission Date: 20100115
  Serious: Yes (Other)
  Sender: FDA-Public Use
  Company Number: None

PATIENT
  Sex: Female
  Weight: 81.6475 kg

DRUGS (2)
  1. LEVAQUIN [Suspect]
     Indication: SINUSITIS
     Dosage: 14 DAYS 1 DAILY
     Dates: start: 20040730, end: 20040814
  2. LEVAQUIN [Suspect]
     Indication: BRONCHITIS
     Dosage: 14 DAYS 1 DAILY
     Dates: start: 20070216, end: 20070223

REACTIONS (8)
  - ACTIVITIES OF DAILY LIVING IMPAIRED [None]
  - GAIT DISTURBANCE [None]
  - GRIP STRENGTH DECREASED [None]
  - MUSCULAR WEAKNESS [None]
  - PLANTAR FASCIITIS [None]
  - QUALITY OF LIFE DECREASED [None]
  - TENDON DISORDER [None]
  - TENDON RUPTURE [None]
